FAERS Safety Report 18576647 (Version 4)
Quarter: 2020Q4

REPORT INFORMATION
  Report Type: Report from Study
  Country: AU (occurrence: AU)
  Receive Date: 20201203
  Receipt Date: 20201215
  Transmission Date: 20210114
  Serious: Yes (Life-Threatening, Hospitalization)
  Sender: FDA-Public Use
  Company Number: AU-CELGENEUS-AUS-20201107087

PATIENT
  Age: 66 Year
  Sex: Female
  Weight: 123.7 kg

DRUGS (13)
  1. FENTANYL. [Concomitant]
     Active Substance: FENTANYL
     Indication: PREMEDICATION
     Route: 041
     Dates: start: 20201020, end: 20201020
  2. PANTOPRAZOLE [Concomitant]
     Active Substance: PANTOPRAZOLE
     Indication: PROPHYLAXIS
     Dosage: 40 MILLIGRAM
     Route: 048
     Dates: start: 2018
  3. POSACONAZOLE [Concomitant]
     Active Substance: POSACONAZOLE
     Indication: ANTIFUNGAL PROPHYLAXIS
     Dosage: 300 MILLIGRAM
     Route: 048
     Dates: start: 20201123
  4. ROSUVASTIN [Concomitant]
     Active Substance: ROSUVASTATIN
     Indication: HYPERCHOLESTEROLAEMIA
     Route: 048
     Dates: start: 2014
  5. OLMESARTAN [Concomitant]
     Active Substance: OLMESARTAN
     Indication: PRODUCT USED FOR UNKNOWN INDICATION
     Route: 065
     Dates: start: 201805, end: 20201126
  6. CLEXANE [Concomitant]
     Active Substance: ENOXAPARIN SODIUM
     Indication: THROMBOSIS PROPHYLAXIS
     Dosage: 20 MILLIGRAM
     Route: 058
     Dates: start: 20201126
  7. MIDAZOLAM. [Concomitant]
     Active Substance: MIDAZOLAM
     Indication: PREMEDICATION
     Route: 041
     Dates: start: 20201020, end: 20201020
  8. PONATINIB [Suspect]
     Active Substance: PONATINIB
     Indication: ACUTE MYELOID LEUKAEMIA
     Route: 048
     Dates: start: 20201030, end: 20201119
  9. LINAGLIPTIN [Concomitant]
     Active Substance: LINAGLIPTIN
     Indication: HYPERTENSION
     Route: 048
     Dates: start: 2014
  10. PETER MAC MOUTH WASH [Concomitant]
     Indication: PROPHYLAXIS
     Dosage: 1 SACHET
     Route: 061
     Dates: start: 202010, end: 20201126
  11. AZACITIDINE. [Suspect]
     Active Substance: AZACITIDINE
     Indication: ACUTE MYELOID LEUKAEMIA
     Route: 058
     Dates: start: 20201026, end: 20201126
  12. METFORMIN [Concomitant]
     Active Substance: METFORMIN HYDROCHLORIDE
     Indication: TYPE 2 DIABETES MELLITUS
     Dosage: 500 MILLIGRAM
     Route: 048
     Dates: start: 2014, end: 20201126
  13. MAGNESIUM ASPARTATE [Concomitant]
     Active Substance: MAGNESIUM ASPARTATE
     Indication: PROPHYLAXIS
     Dosage: 4 DOSAGE FORMS
     Route: 048
     Dates: start: 2018

REACTIONS (2)
  - Tubulointerstitial nephritis [Not Recovered/Not Resolved]
  - Pyrexia [Unknown]

NARRATIVE: CASE EVENT DATE: 2020
